FAERS Safety Report 22533449 (Version 1)
Quarter: 2023Q2

REPORT INFORMATION
  Report Type: Spontaneous
  Country: US (occurrence: US)
  Receive Date: 20230608
  Receipt Date: 20230608
  Transmission Date: 20230722
  Serious: No
  Sender: FDA-Public Use
  Company Number: US-AMGEN-USASP2023098283

PATIENT
  Age: 80 Year
  Sex: Female

DRUGS (5)
  1. REPATHA [Suspect]
     Active Substance: EVOLOCUMAB
     Indication: Blood cholesterol abnormal
     Dosage: 140 MILLIGRAM, EVERY OTHER WEEK
     Route: 058
     Dates: start: 2022
  2. LOSARTAN [Concomitant]
     Active Substance: LOSARTAN
  3. PLAVIX [Concomitant]
     Active Substance: CLOPIDOGREL BISULFATE
  4. HYDROCHLOROTHIAZIDE [Concomitant]
     Active Substance: HYDROCHLOROTHIAZIDE
  5. TYLENOL [Concomitant]
     Active Substance: ACETAMINOPHEN
     Indication: Myalgia

REACTIONS (3)
  - Arthralgia [Recovering/Resolving]
  - Oropharyngeal pain [Recovering/Resolving]
  - Myalgia [Recovering/Resolving]

NARRATIVE: CASE EVENT DATE: 20230529
